FAERS Safety Report 6010012-2 (Version None)
Quarter: 2008Q4

REPORT INFORMATION
  Report Type: 
  Country: None (occurrence: None)
  Receive Date: 20081218
  Receipt Date: 20081205
  Transmission Date: 20090506
  Serious: Yes (Other)
  Sender: FDA-Public Use
  Company Number: JP-PFIZER INC-2008098567

PATIENT

DRUGS (3)
  1. CARDENALIN [Suspect]
     Indication: HYPERTENSION
     Dosage: UNK
     Route: 048
     Dates: start: 20071206, end: 20081101
  2. INSULIN [Concomitant]
     Dosage: UNK
     Dates: start: 20000101
  3. LASIX [Concomitant]
     Dosage: UNK
     Route: 048
     Dates: start: 20050101

REACTIONS (2)
  - CEREBRAL INFARCTION [None]
  - DIZZINESS [None]
